FAERS Safety Report 16211510 (Version 2)
Quarter: 2019Q2

REPORT INFORMATION
  Report Type: Spontaneous
  Country: US (occurrence: US)
  Receive Date: 20190418
  Receipt Date: 20190513
  Transmission Date: 20190711
  Serious: No
  Sender: FDA-Public Use
  Company Number: US-AMGEN-USASP2019060094

PATIENT
  Age: 76 Year
  Sex: Male
  Weight: 91.61 kg

DRUGS (1)
  1. NEULASTA [Suspect]
     Active Substance: PEGFILGRASTIM
     Indication: PROPHYLAXIS
     Dosage: 6 MILLIGRAM, Q3WK
     Route: 065

REACTIONS (4)
  - Drug dose omission by device [Unknown]
  - White blood cell count decreased [Unknown]
  - Application site haemorrhage [Recovered/Resolved]
  - Device malfunction [Unknown]

NARRATIVE: CASE EVENT DATE: 2019
